FAERS Safety Report 4521613-2 (Version None)
Quarter: 2004Q4

REPORT INFORMATION
  Report Type: 
  Country: None (occurrence: None)
  Receive Date: 20041209
  Receipt Date: 20041126
  Transmission Date: 20050328
  Serious: Yes (Other)
  Sender: FDA-Public Use
  Company Number: BE-JNJFOC-20041200020

PATIENT
  Sex: Female

DRUGS (3)
  1. REMICADE [Suspect]
     Indication: FISTULA
     Route: 042
  2. REMICADE [Suspect]
     Route: 042
  3. IMURAN [Suspect]
     Indication: DRUG USE FOR UNKNOWN INDICATION

REACTIONS (5)
  - ASTHENIA [None]
  - INFECTIOUS MONONUCLEOSIS [None]
  - MYALGIA [None]
  - VIRAL INFECTION [None]
  - VISUAL FIELD DEFECT [None]
